FAERS Safety Report 18089938 (Version 1)
Quarter: 2020Q3

REPORT INFORMATION
  Report Type: Spontaneous
  Country: GB (occurrence: GB)
  Receive Date: 20200730
  Receipt Date: 20200730
  Transmission Date: 20201103
  Serious: Yes (Life-Threatening)
  Sender: FDA-Public Use
  Company Number: GB-TEVA-2020-GB-1806277

PATIENT
  Age: 27 Year
  Sex: Male
  Weight: 70 kg

DRUGS (35)
  1. CASPOFUNGIN [Concomitant]
     Active Substance: CASPOFUNGIN
     Dosage: 35 MG
  2. METRONIDAZOLE. [Concomitant]
     Active Substance: METRONIDAZOLE
  3. ACETYLCYSTEINE. [Concomitant]
     Active Substance: ACETYLCYSTEINE
  4. PROPOFOL. [Concomitant]
     Active Substance: PROPOFOL
  5. CEFTRIAXONE. [Concomitant]
     Active Substance: CEFTRIAXONE
     Dosage: 1 GRAM
  6. LORAZEPAM. [Concomitant]
     Active Substance: LORAZEPAM
     Dosage: 1?2MG
  7. MAGNASPARTATE [Concomitant]
  8. ALFENTANIL HYDROCHLORIDE. [Concomitant]
     Active Substance: ALFENTANIL HYDROCHLORIDE
  9. PABRINEX [Concomitant]
     Active Substance: ASCORBIC ACID\VITAMIN B COMPLEX
  10. FUROSEMIDE. [Concomitant]
     Active Substance: FUROSEMIDE
     Dosage: VARIOUS STAT DOSES
  11. OMEPRAZOLE. [Concomitant]
     Active Substance: OMEPRAZOLE
     Dosage: 40 MG
  12. MEROPENEM. [Concomitant]
     Active Substance: MEROPENEM
     Dosage: 2 GRAM
  13. FERROUS SULFATE. [Concomitant]
     Active Substance: FERROUS SULFATE
     Dosage: 600 MG
  14. MIRTAZAPINE. [Concomitant]
     Active Substance: MIRTAZAPINE
     Dosage: 30 MILLIGRAM DAILY; AT NIGHT
  15. THIAMINE. [Concomitant]
     Active Substance: THIAMINE
     Dosage: 300 MG
  16. PANCREX [Concomitant]
     Dosage: POWDER (AS AN ALTERNATIVE TO CREON DUE TO SWALLOWING PROBLEMS)
  17. HALOPERIDOL. [Suspect]
     Active Substance: HALOPERIDOL
     Indication: DELIRIUM
     Dosage: 2?4 HOURLY. 2.5 MG
     Route: 042
     Dates: start: 20200624
  18. DEXMEDETOMIDINE. [Concomitant]
     Active Substance: DEXMEDETOMIDINE
  19. PARACETAMOL [Concomitant]
     Active Substance: ACETAMINOPHEN
     Dosage: INTRAVENOUS AND ORAL
  20. NOREPINEPHRINE. [Concomitant]
     Active Substance: NOREPINEPHRINE
  21. POLYFUSOR NA PHOSPHATES [Concomitant]
     Dosage: (SEVERAL STAT DOSES)
  22. MAGNESIUM SULFATE. [Concomitant]
     Active Substance: MAGNESIUM SULFATE
     Route: 042
  23. FOLIC ACID. [Concomitant]
     Active Substance: FOLIC ACID
     Dosage: 5 MG
  24. OLANZAPINE. [Suspect]
     Active Substance: OLANZAPINE
     Indication: DELIRIUM
     Dosage: 10 MILLIGRAM DAILY; AT NIGHT
     Route: 048
     Dates: start: 20200623
  25. TINZAPARIN [Concomitant]
     Active Substance: TINZAPARIN
     Dosage: 3500 IU
  26. RIFAXIMIN. [Concomitant]
     Active Substance: RIFAXIMIN
     Dosage: 1100 MG
  27. LINEZOLID. [Concomitant]
     Active Substance: LINEZOLID
     Dosage: 1200 MG
  28. LACTULOSE. [Concomitant]
     Active Substance: LACTULOSE
  29. MACROGOL [Concomitant]
     Active Substance: POLYETHYLENE GLYCOLS
  30. CREON [Concomitant]
     Active Substance: PANCRELIPASE AMYLASE\PANCRELIPASE LIPASE\PANCRELIPASE PROTEASE
     Dosage: 2 WITH MEALS AND 1 WITH SNACKS.
  31. FLUCONAZOLE. [Concomitant]
     Active Substance: FLUCONAZOLE
     Dosage: 200 MG
     Route: 042
  32. PHYTOMENADIONE [Concomitant]
     Active Substance: PHYTONADIONE
     Dosage: SEVERAL STAT DOSES. 10 MG
     Route: 042
  33. CIPROFLOXACIN. [Suspect]
     Active Substance: CIPROFLOXACIN
     Indication: ABDOMINAL SEPSIS
     Dosage: 800 MG
     Route: 042
     Dates: start: 20200615, end: 20200624
  34. PHENYTOIN. [Concomitant]
     Active Substance: PHENYTOIN
     Dosage: LOADING DOSE. 2 GRAM
     Dates: start: 20200622
  35. TERLIPRESSIN [Concomitant]
     Active Substance: TERLIPRESSIN

REACTIONS (2)
  - Blood potassium decreased [Unknown]
  - Electrocardiogram QT prolonged [Recovering/Resolving]

NARRATIVE: CASE EVENT DATE: 20200624
